FAERS Safety Report 13660834 (Version 1)
Quarter: 2017Q2

REPORT INFORMATION
  Report Type: Spontaneous
  Country: FR (occurrence: FR)
  Receive Date: 20170616
  Receipt Date: 20170616
  Transmission Date: 20170830
  Serious: Yes (Other)
  Sender: FDA-Public Use
  Company Number: FR-ABBVIE-17P-056-2009368-00

PATIENT
  Sex: Female

DRUGS (1)
  1. DEPAKINE [Suspect]
     Active Substance: VALPROATE SODIUM
     Indication: EPILEPSY
     Dosage: DAILY
     Route: 048

REACTIONS (3)
  - Bronchitis [Not Recovered/Not Resolved]
  - Pain [Not Recovered/Not Resolved]
  - Blindness [Not Recovered/Not Resolved]
